FAERS Safety Report 19818791 (Version 1)
Quarter: 2021Q3

REPORT INFORMATION
  Report Type: Spontaneous
  Country: US (occurrence: US)
  Receive Date: 20210912
  Receipt Date: 20210912
  Transmission Date: 20211014
  Serious: Yes (Hospitalization)
  Sender: FDA-Public Use
  Company Number: US-STRIDES ARCOLAB LIMITED-2021SP025418

PATIENT
  Age: 85 Year
  Sex: Male

DRUGS (7)
  1. PREDNISOLONE. [Suspect]
     Active Substance: PREDNISOLONE
     Dosage: 20 MILLIGRAM PER DAY
     Route: 048
  2. NIVOLUMAB [Concomitant]
     Active Substance: NIVOLUMAB
     Indication: KAPOSI^S SARCOMA CLASSICAL TYPE
     Dosage: UNK, CYCLICAL 9 CYCLES, MONTHLY
     Route: 065
  3. PREDNISOLONE. [Suspect]
     Active Substance: PREDNISOLONE
     Indication: LICHENOID KERATOSIS
     Dosage: 1 MILLIGRAM/KILOGRAM
     Route: 048
  4. PACLITAXEL. [Concomitant]
     Active Substance: PACLITAXEL
     Indication: KAPOSI^S SARCOMA CLASSICAL TYPE
     Dosage: UNK
     Route: 065
  5. DOXYCYCLINE. [Concomitant]
     Active Substance: DOXYCYCLINE
     Indication: EVIDENCE BASED TREATMENT
     Dosage: UNK
     Route: 065
  6. ATOVAQUONE. [Concomitant]
     Active Substance: ATOVAQUONE
     Indication: ANTIBIOTIC PROPHYLAXIS
     Dosage: UNK
     Route: 065
  7. EVEROLIMUS. [Concomitant]
     Active Substance: EVEROLIMUS
     Indication: KAPOSI^S SARCOMA CLASSICAL TYPE
     Dosage: UNK
     Route: 065

REACTIONS (6)
  - Pneumonia fungal [Unknown]
  - Streptococcal infection [Unknown]
  - Human herpesvirus 8 infection [Unknown]
  - Clostridial infection [Unknown]
  - Enterococcal infection [Unknown]
  - Alpha haemolytic streptococcal infection [Unknown]
